FAERS Safety Report 10961122 (Version 8)
Quarter: 2016Q4

REPORT INFORMATION
  Report Type: Report from Study
  Country: US (occurrence: US)
  Receive Date: 20150327
  Receipt Date: 20161228
  Transmission Date: 20170206
  Serious: Yes (Hospitalization)
  Sender: FDA-Public Use
  Company Number: US-ACTELION-A-US2015-111065

PATIENT
  Age: 42 Year
  Sex: Female

DRUGS (3)
  1. OPSUMIT [Suspect]
     Active Substance: MACITENTAN
     Indication: PULMONARY ARTERIAL HYPERTENSION
     Dosage: 10 MG, QD
     Route: 048
     Dates: start: 20141203
  2. REVATIO [Concomitant]
     Active Substance: SILDENAFIL CITRATE
  3. FLOLAN [Concomitant]
     Active Substance: EPOPROSTENOL SODIUM
     Dosage: 9 NG/KG, PER MIN

REACTIONS (9)
  - Chest discomfort [Unknown]
  - Catheter site infection [Unknown]
  - Device related infection [Unknown]
  - Chest pain [Unknown]
  - Catheter site erythema [Unknown]
  - Nausea [Unknown]
  - Catheter placement [Unknown]
  - Bacterial infection [Unknown]
  - Weight decreased [Unknown]
